FAERS Safety Report 15844277 (Version 2)
Quarter: 2019Q1

REPORT INFORMATION
  Report Type: Spontaneous
  Country: US (occurrence: US)
  Receive Date: 20190118
  Receipt Date: 20190211
  Transmission Date: 20190417
  Serious: No
  Sender: FDA-Public Use
  Company Number: US-BAUSCH-BL-2019-000639

PATIENT
  Age: 53 Year
  Sex: Female
  Weight: 90.8 kg

DRUGS (9)
  1. ATIVAN [Suspect]
     Active Substance: LORAZEPAM
     Dosage: OLD BOTTLE
     Route: 048
  2. RAMIPRIL. [Concomitant]
     Active Substance: RAMIPRIL
     Indication: PRODUCT USED FOR UNKNOWN INDICATION
     Route: 048
  3. ATIVAN [Suspect]
     Active Substance: LORAZEPAM
     Dosage: NEW BOTTLE
     Route: 048
  4. METFORMIN [Concomitant]
     Active Substance: METFORMIN HYDROCHLORIDE
     Indication: PRODUCT USED FOR UNKNOWN INDICATION
     Route: 048
  5. ATIVAN [Suspect]
     Active Substance: LORAZEPAM
     Indication: ANXIETY
     Route: 048
     Dates: start: 2017
  6. ATIVAN [Suspect]
     Active Substance: LORAZEPAM
     Dosage: OLDER BOTTLE
     Route: 048
  7. COREG [Concomitant]
     Active Substance: CARVEDILOL
     Indication: PRODUCT USED FOR UNKNOWN INDICATION
     Route: 048
  8. ATIVAN [Suspect]
     Active Substance: LORAZEPAM
     Dosage: NEW BOTTLE?ONE TABLET
     Route: 048
     Dates: start: 20181230
  9. ATIVAN [Suspect]
     Active Substance: LORAZEPAM
     Dosage: NEW BOTTLE
     Route: 048
     Dates: start: 20190106

REACTIONS (7)
  - Product quality issue [Not Recovered/Not Resolved]
  - Choking [Not Recovered/Not Resolved]
  - Heart rate increased [Not Recovered/Not Resolved]
  - Anxiety [Not Recovered/Not Resolved]
  - Nervousness [Not Recovered/Not Resolved]
  - Palpitations [Not Recovered/Not Resolved]
  - Headache [Not Recovered/Not Resolved]

NARRATIVE: CASE EVENT DATE: 20181230
